FAERS Safety Report 9024561 (Version 1)
Quarter: 2013Q1

REPORT INFORMATION
  Report Type: Spontaneous
  Country: US (occurrence: None)
  Receive Date: 20130104
  Receipt Date: 20130104
  Transmission Date: 20140127
  Serious: No
  Sender: FDA-Public Use
  Company Number: CA12-0345

PATIENT
  Sex: Female

DRUGS (1)
  1. ENOXAPARIN SODIUM [Suspect]
     Indication: INJURY ASSOCIATED WITH DEVICE

REACTIONS (2)
  - Injury associated with device [None]
  - Accidental exposure to product [None]
